FAERS Safety Report 6124640-7 (Version None)
Quarter: 2009Q1

REPORT INFORMATION
  Report Type: 
  Country: None (occurrence: None)
  Receive Date: 20090319
  Receipt Date: 20090312
  Transmission Date: 20090719
  Serious: Yes (Other)
  Sender: FDA-Public Use
  Company Number: B0564627A

PATIENT
  Age: 86 Year
  Sex: Female

DRUGS (4)
  1. ACYCLOVIR [Suspect]
     Dosage: 2000MG PER DAY
     Route: 048
     Dates: start: 20090228, end: 20090306
  2. FUROSEMIDE [Concomitant]
  3. LANSOPRAZOLE [Concomitant]
  4. PARACETAMOL [Concomitant]

REACTIONS (2)
  - EMOTIONAL DISTRESS [None]
  - HALLUCINATIONS, MIXED [None]
